FAERS Safety Report 20081835 (Version 1)
Quarter: 2021Q4

REPORT INFORMATION
  Report Type: Spontaneous
  Country: DE (occurrence: DE)
  Receive Date: 20211117
  Receipt Date: 20211117
  Transmission Date: 20220303
  Serious: Yes (Hospitalization)
  Sender: FDA-Public Use
  Company Number: DE-ADRED-07049-04

PATIENT
  Age: 73 Year
  Sex: Male
  Weight: 71 kg

DRUGS (14)
  1. BISOPROLOL [Suspect]
     Active Substance: BISOPROLOL
     Indication: Product used for unknown indication
     Dosage: 2.5 MILLIGRAM, QD 1-0-0-0
     Route: 065
  2. AMBROXOL [Concomitant]
     Active Substance: AMBROXOL
     Dosage: 15 MILLIGRAM, QD 1-0-0-0
     Route: 065
  3. KALIUM                             /00031401/ [Concomitant]
     Dosage: UNK, 2-2-0-0
  4. CHOLECALCIFEROL [Concomitant]
     Active Substance: CHOLECALCIFEROL
     Dosage: 1000 INTERNATIONAL UNIT, QD
  5. METOCLOPRAMID                      /00041901/ [Concomitant]
     Dosage: 10 MILLIGRAM, BEDARF
  6. AZITHROMYCIN [Concomitant]
     Active Substance: AZITHROMYCIN
     Dosage: 500 MILLIGRAM, SCHEMA
  7. BUDESONIDE [Concomitant]
     Active Substance: BUDESONIDE
     Dosage: 400 MICROGRAM, BID, 1-0-1-0
  8. MORPHINE [Concomitant]
     Active Substance: MORPHINE
     Dosage: 10 MILLIGRAM, QD, 1-0-0-0
  9. MIRTAZAPINE [Concomitant]
     Active Substance: MIRTAZAPINE
     Dosage: 15 MILLIGRAM, QD,  0-0-1-0
  10. ALBUTEROL [Concomitant]
     Active Substance: ALBUTEROL
     Dosage: UNK, BEDARF
  11. IPRATROPIUM BROMIDE [Concomitant]
     Active Substance: IPRATROPIUM BROMIDE
     Dosage: UNK, BEDARF
  12. ALENDRONIC ACID [Concomitant]
     Active Substance: ALENDRONIC ACID
     Dosage: 70 MILLIGRAM, SCHEMA
  13. PANTOPRAZOLE [Concomitant]
     Active Substance: PANTOPRAZOLE
     Dosage: 40 MILLIGRAM, QD 1-0-0-0
  14. SIMVASTATIN [Concomitant]
     Active Substance: SIMVASTATIN
     Dosage: 20 MILLIGRAM, QD, 0-0-1-0

REACTIONS (13)
  - Electrocardiogram abnormal [Unknown]
  - Cyanosis [Unknown]
  - General physical health deterioration [Unknown]
  - Dyspnoea [Unknown]
  - Acute respiratory failure [Unknown]
  - Tachypnoea [Unknown]
  - Systemic infection [Unknown]
  - Condition aggravated [Unknown]
  - Anaemia [Unknown]
  - Chronic obstructive pulmonary disease [Unknown]
  - Renal impairment [Unknown]
  - Cough [Unknown]
  - Weight decreased [Unknown]
